FAERS Safety Report 23399055 (Version 1)
Quarter: 2024Q1

REPORT INFORMATION
  Report Type: Report from Study
  Country: US (occurrence: US)
  Receive Date: 20240113
  Receipt Date: 20240113
  Transmission Date: 20240409
  Serious: Yes (Other)
  Sender: FDA-Public Use
  Company Number: US-ABBVIE-5583337

PATIENT
  Sex: Male

DRUGS (1)
  1. RESTASIS [Suspect]
     Active Substance: CYCLOSPORINE
     Indication: Product used for unknown indication
     Dosage: 0. 5% EYE EMULSION?FREQUENCY TEXT: ONE DROP IN EACH EYE MORNING AND EVENING
     Route: 047

REACTIONS (1)
  - Cataract [Unknown]
